FAERS Safety Report 8910023 (Version 2)
Quarter: 2013Q1

REPORT INFORMATION
  Report Type: Spontaneous
  Country: US (occurrence: US)
  Receive Date: 20121115
  Receipt Date: 20130218
  Transmission Date: 20140127
  Serious: No
  Sender: FDA-Public Use
  Company Number: US-009507513-1211USA005635

PATIENT
  Age: 33 None
  Sex: Female
  Weight: 70.75 kg

DRUGS (3)
  1. IMPLANON [Suspect]
     Indication: CONTRACEPTION
     Dosage: UNK
     Route: 059
     Dates: start: 20090513
  2. TYLENOL [Concomitant]
  3. NAPROXEN [Concomitant]

REACTIONS (3)
  - Mood swings [Not Recovered/Not Resolved]
  - Incorrect drug administration duration [Unknown]
  - Expired drug administered [Unknown]
